FAERS Safety Report 6573618-8 (Version None)
Quarter: 2010Q1

REPORT INFORMATION
  Report Type: 
  Country: None (occurrence: None)
  Receive Date: 20100204
  Receipt Date: 20100204
  Transmission Date: 20100710
  Serious: Yes (Life-Threatening, Hospitalization)
  Sender: FDA-Public Use
  Company Number: None

PATIENT
  Age: 61 Year
  Sex: Female
  Weight: 68.95 kg

DRUGS (2)
  1. SORINE [Suspect]
     Indication: ATRIAL FIBRILLATION
     Dosage: 80MG BID PO
     Route: 048
     Dates: start: 20070730, end: 20091215
  2. LOVASTATIN [Concomitant]

REACTIONS (3)
  - ATRIAL FIBRILLATION [None]
  - CEREBROVASCULAR ACCIDENT [None]
  - PRODUCT SUBSTITUTION ISSUE [None]
